FAERS Safety Report 8612682-9 (Version None)
Quarter: 2012Q3

REPORT INFORMATION
  Report Type: 
  Country: None (occurrence: None)
  Receive Date: 20120822
  Receipt Date: 20110927
  Transmission Date: 20120928
  Serious: No
  Sender: FDA-Public Use
  Company Number: US-ASTRAZENECA-2011SE58494

PATIENT
  Age: 76 Year
  Sex: Male

DRUGS (5)
  1. HYTRIN [Concomitant]
  2. PRAVASTATIN [Concomitant]
  3. LEXAPRO [Concomitant]
  4. PREDNISONE TAB [Concomitant]
  5. SYMBICORT [Suspect]
     Route: 055

REACTIONS (4)
  - SWELLING FACE [None]
  - LIP BLISTER [None]
  - LIP SWELLING [None]
  - SWOLLEN TONGUE [None]
